FAERS Safety Report 19148150 (Version 2)
Quarter: 2021Q4

REPORT INFORMATION
  Report Type: Spontaneous
  Country: FR (occurrence: FR)
  Receive Date: 20210417
  Receipt Date: 20211216
  Transmission Date: 20220303
  Serious: Yes (Other)
  Sender: FDA-Public Use
  Company Number: FR-AUROBINDO-AUR-APL-2021-015326

PATIENT
  Age: 69 Year
  Sex: Female

DRUGS (1)
  1. FENOFIBRATE [Suspect]
     Active Substance: FENOFIBRATE
     Indication: Type IV hyperlipidaemia
     Dosage: 300 MILLIGRAM, DAILY
     Route: 065
     Dates: start: 200003

REACTIONS (2)
  - Pancytopenia [Recovered/Resolved]
  - Pyrexia [Recovered/Resolved]
